FAERS Safety Report 4804736-X (Version None)
Quarter: 2005Q4

REPORT INFORMATION
  Report Type: 
  Country: None (occurrence: None)
  Receive Date: 20051017
  Receipt Date: 20051005
  Transmission Date: 20060501
  Serious: Yes (Hospitalization)
  Sender: FDA-Public Use
  Company Number: 2005138974

PATIENT
  Age: 11 Year
  Sex: Female

DRUGS (1)
  1. ETHOSUXIMIDE [Suspect]
     Indication: ILL-DEFINED DISORDER

REACTIONS (2)
  - MUCOSAL HAEMORRHAGE [None]
  - PANCYTOPENIA [None]
